FAERS Safety Report 8766957 (Version 1)
Quarter: 2012Q4

REPORT INFORMATION
  Report Type: 
  Country: GB (occurrence: GB)
  Receive Date: 20120903
  Receipt Date: 20120903
  Transmission Date: 20130627
  Serious: Yes (Other)
  Sender: FDA-Public Use
  Company Number: GB-BAYER-2012-089156

PATIENT
  Age: 30 Year
  Sex: Female

DRUGS (16)
  1. NIFEDIPINE [Suspect]
     Indication: RAYNAUD^S PHENOMENON
     Dosage: UNK
     Dates: start: 1994
  2. NIFEDIPINE [Suspect]
     Indication: SKIN ULCER
  3. CAPTOPRIL [Concomitant]
     Indication: RAYNAUD^S PHENOMENON
     Dosage: UNK
     Dates: start: 1982
  4. CAPTOPRIL [Concomitant]
     Indication: SKIN ULCER
  5. AZATHIOPRINE [Concomitant]
     Indication: RAYNAUD^S PHENOMENON
  6. AZATHIOPRINE [Concomitant]
     Indication: SKIN ULCER
  7. PREDNISOLONE [Concomitant]
     Indication: RAYNAUD^S PHENOMENON
  8. PREDNISOLONE [Concomitant]
     Indication: SKIN ULCER
  9. NICOTINIC ACID [Concomitant]
     Indication: RAYNAUD^S PHENOMENON
  10. NICOTINIC ACID [Concomitant]
     Indication: SKIN ULCER
  11. VENTAVIS [ILOPROST] [Concomitant]
     Indication: RAYNAUD^S PHENOMENON
  12. VENTAVIS [ILOPROST] [Concomitant]
     Indication: SKIN ULCER
  13. FLUOXETINE [Concomitant]
     Indication: RAYNAUD^S PHENOMENON
  14. FLUOXETINE [Concomitant]
     Indication: SKIN ULCER
  15. GLYCERYL TRINITRATE [Concomitant]
     Indication: RAYNAUD^S PHENOMENON
  16. GLYCERYL TRINITRATE [Concomitant]
     Indication: SKIN ULCER

REACTIONS (2)
  - Raynaud^s phenomenon [None]
  - Skin ulcer [Recovering/Resolving]
